FAERS Safety Report 9553440 (Version 1)
Quarter: 2013Q3

REPORT INFORMATION
  Report Type: Spontaneous
  Country: SE (occurrence: SE)
  Receive Date: 20130925
  Receipt Date: 20130925
  Transmission Date: 20140515
  Serious: Yes (Hospitalization)
  Sender: FDA-Public Use
  Company Number: SE-PFIZER INC-2013273547

PATIENT
  Age: 87 Year
  Sex: Female

DRUGS (22)
  1. DOLCONTIN [Suspect]
     Indication: PAIN
     Dosage: UNK
  2. PROPAVAN [Concomitant]
     Dosage: 25 MG, UNK
  3. LOCOBASE LPL [Concomitant]
  4. XALATAN [Concomitant]
  5. NITROLINGUAL [Concomitant]
  6. METOPROLOL [Concomitant]
  7. TIMOSAN [Concomitant]
  8. LEVAXIN [Concomitant]
  9. PANODIL [Concomitant]
  10. LAXOBERAL [Concomitant]
  11. FURIX [Concomitant]
  12. GAVISCON [Concomitant]
  13. OVESTERIN [Concomitant]
  14. OXASCAND [Concomitant]
  15. TROMBYL [Concomitant]
  16. ENALAPRIL [Concomitant]
  17. KETOGAN NOVUM [Concomitant]
  18. CANODERM [Concomitant]
  19. MOVICOL [Concomitant]
  20. XERODENT [Concomitant]
  21. PANTOLOC ^BYK MADAUS^ [Concomitant]
  22. FURIX RETARD [Concomitant]

REACTIONS (2)
  - Depressed level of consciousness [Unknown]
  - Confusional state [Unknown]
